FAERS Safety Report 23341313 (Version 1)
Quarter: 2023Q4

REPORT INFORMATION
  Report Type: Spontaneous
  Country: US (occurrence: US)
  Receive Date: 20231227
  Receipt Date: 20231227
  Transmission Date: 20240109
  Serious: Yes (Other)
  Sender: FDA-Public Use
  Company Number: US-STRIDES ARCOLAB LIMITED-2023SP018923

PATIENT
  Age: 43 Year
  Sex: Female

DRUGS (11)
  1. FUROSEMIDE [Suspect]
     Active Substance: FUROSEMIDE
     Indication: Hypercalcaemia of malignancy
     Dosage: UNK
     Route: 065
  2. FUROSEMIDE [Suspect]
     Active Substance: FUROSEMIDE
     Indication: Neuroendocrine tumour
     Dosage: UNK
     Route: 065
  3. CALCITONIN [Suspect]
     Active Substance: CALCITONIN
     Indication: Hypercalcaemia of malignancy
     Dosage: 200 INTERNATIONAL UNIT, EVERY 12 HRS
     Route: 058
  4. CALCITONIN [Suspect]
     Active Substance: CALCITONIN
     Indication: Neuroendocrine tumour
     Dosage: 480 INTERNATIONAL UNIT, EVERY 12 HRS
     Route: 058
  5. DEXAMETHASONE [Suspect]
     Active Substance: DEXAMETHASONE
     Indication: Hypercalcaemia of malignancy
     Dosage: 10 MILLIGRAM, SINGLE, RECEIVED SINGLE DOSE
     Route: 042
  6. DEXAMETHASONE [Suspect]
     Active Substance: DEXAMETHASONE
     Indication: Neuroendocrine tumour
  7. PREDNISOLONE [Suspect]
     Active Substance: PREDNISOLONE
     Indication: Hypercalcaemia of malignancy
     Dosage: 10 MILLIGRAM, DAILY
     Route: 065
  8. PREDNISOLONE [Suspect]
     Active Substance: PREDNISOLONE
     Indication: Neuroendocrine tumour
  9. INSULIN NOS [Suspect]
     Active Substance: INSULIN NOS
     Indication: Gestational diabetes
     Dosage: UNK
     Route: 065
  10. SALINE [Suspect]
     Active Substance: SODIUM CHLORIDE
     Indication: Hypercalcaemia of malignancy
     Dosage: UNK
     Route: 065
  11. SALINE [Suspect]
     Active Substance: SODIUM CHLORIDE
     Indication: Neuroendocrine tumour
     Dosage: UNK, 32 WEEKS GESTATION
     Route: 065

REACTIONS (3)
  - Premature delivery [Unknown]
  - Maternal exposure during pregnancy [Unknown]
  - Off label use [Unknown]
